FAERS Safety Report 8558004-3 (Version None)
Quarter: 2012Q3

REPORT INFORMATION
  Report Type: 
  Country: None (occurrence: None)
  Receive Date: 20120801
  Receipt Date: 20120723
  Transmission Date: 20120928
  Serious: Yes (Other)
  Sender: FDA-Public Use
  Company Number: US-JNJFOC-20120602731

PATIENT
  Sex: Female

DRUGS (3)
  1. REMICADE [Suspect]
     Indication: RHEUMATOID ARTHRITIS
     Route: 042
     Dates: start: 20010116
  2. METHOTREXATE [Concomitant]
     Indication: RHEUMATOID ARTHRITIS
     Dosage: ONCE EVERY TUESDAY
     Route: 048
     Dates: start: 19920101
  3. REMICADE [Suspect]
     Route: 042
     Dates: start: 20120404

REACTIONS (12)
  - ERYTHEMA [None]
  - CHEST PAIN [None]
  - FEELING ABNORMAL [None]
  - SWELLING [None]
  - DRUG INEFFECTIVE [None]
  - DIZZINESS [None]
  - RHEUMATOID ARTHRITIS [None]
  - PAIN IN EXTREMITY [None]
  - TYPE 2 DIABETES MELLITUS [None]
  - FATIGUE [None]
  - INFUSION SITE SWELLING [None]
  - SOMNOLENCE [None]
